FAERS Safety Report 11239713 (Version 1)
Quarter: 2015Q3

REPORT INFORMATION
  Report Type: Spontaneous
  Country: US (occurrence: None)
  Receive Date: 20150701
  Receipt Date: 20150701
  Transmission Date: 20151125
  Serious: Yes (Other)
  Sender: FDA-Public Use
  Company Number: None

PATIENT
  Sex: Female

DRUGS (1)
  1. DEXTROAMPHET SACCHARAT, AMPHET ASPARTATE, DEXTROAMPHET SULFATE AND AMPHET SULFAT [Suspect]
     Active Substance: AMPHETAMINE ASPARTATE\AMPHETAMINE SULFATE\DEXTROAMPHETAMINE SACCHARATE\DEXTROAMPHETAMINE SULFATE
     Route: 048

REACTIONS (13)
  - Jaw disorder [None]
  - Bite [None]
  - Product quality issue [None]
  - Tooth impacted [None]
  - Dry mouth [None]
  - Oral mucosal discolouration [None]
  - Epistaxis [None]
  - Pharyngeal disorder [None]
  - Product substitution issue [None]
  - Toothache [None]
  - Mouth swelling [None]
  - Gingival pain [None]
  - Dysphagia [None]
